FAERS Safety Report 9129713 (Version 1)
Quarter: 2013Q1

REPORT INFORMATION
  Report Type: Spontaneous
  Country: GB (occurrence: GB)
  Receive Date: 20130125
  Receipt Date: 20130125
  Transmission Date: 20140127
  Serious: Yes (Other)
  Sender: FDA-Public Use
  Company Number: GB-TARO-2013P1000781

PATIENT
  Age: 23 Year
  Sex: Female

DRUGS (2)
  1. CARBAMAZEPINE [Suspect]
  2. CARBAMAZEPINE [Suspect]
     Dates: start: 20120220

REACTIONS (2)
  - Convulsion [Unknown]
  - Exposure during pregnancy [None]
